FAERS Safety Report 10249004 (Version 1)
Quarter: 2014Q2

REPORT INFORMATION
  Report Type: Spontaneous
  Country: US (occurrence: None)
  Receive Date: 20140522
  Receipt Date: 20140522
  Transmission Date: 20141212
  Serious: No
  Sender: FDA-Public Use
  Company Number: 1000064810

PATIENT
  Age: 74 Year
  Sex: Female

DRUGS (6)
  1. TUDORZA PRESSAIR [Suspect]
     Indication: CHRONIC OBSTRUCTIVE PULMONARY DISEASE
     Dosage: 800 UG (400 UG, 2 IN 1 D)
     Route: 055
     Dates: start: 20140317
  2. METFORMIN [Concomitant]
  3. BYETTA [Concomitant]
  4. LEVEMIR (INSULIN DETEMIR) [Concomitant]
  5. QUINAPRIL [Concomitant]
  6. ZOCOR (SIMVASTATIN) [Concomitant]

REACTIONS (3)
  - Dyspnoea [None]
  - Dizziness [None]
  - Drug ineffective [None]
